FAERS Safety Report 7798160-8 (Version None)
Quarter: 2011Q4

REPORT INFORMATION
  Report Type: 
  Country: None (occurrence: None)
  Receive Date: 20111005
  Receipt Date: 20110926
  Transmission Date: 20120403
  Serious: Yes (Hospitalization, Other)
  Sender: FDA-Public Use
  Company Number: US-BAYER-2011-037982

PATIENT
  Age: 37 Year
  Sex: Female
  Weight: 108.39 kg

DRUGS (29)
  1. YASMIN [Suspect]
     Indication: CONTRACEPTION
     Dosage: UNK
     Dates: start: 20010101, end: 20050115
  2. ASPIRIN [Concomitant]
     Dosage: UNK
     Dates: start: 20050101
  3. FIORICET [Concomitant]
     Indication: MIGRAINE
     Dosage: UNK
     Dates: start: 20050101
  4. CLONAZEPAM [Concomitant]
     Indication: ANXIETY
     Dosage: UNK
     Dates: start: 20050101, end: 20060101
  5. MELOXICAM [Concomitant]
     Dosage: UNK
     Dates: start: 20050101
  6. BACLOFEN [Concomitant]
     Indication: MUSCLE RELAXANT THERAPY
     Dosage: UNK
     Dates: start: 20050101
  7. IBUPROFEN [Concomitant]
     Dosage: UNK
     Dates: start: 20100101
  8. ALLEGRA [Concomitant]
     Indication: SEASONAL ALLERGY
     Dosage: UNK
     Dates: start: 20050101
  9. JANUVIA [Concomitant]
     Indication: DIABETES MELLITUS
     Dosage: UNK
     Dates: start: 20020101
  10. YASMIN [Suspect]
     Indication: POLYCYSTIC OVARIES
  11. MOBIC [Concomitant]
     Indication: INFLAMMATION
  12. IBUPROFEN [Concomitant]
     Dosage: UNK
     Dates: start: 20090101
  13. MELOXICAM [Concomitant]
     Dosage: UNK
     Dates: start: 20100101
  14. OMEPRAZOLE [Concomitant]
     Indication: GASTRIC PH DECREASED
     Dosage: 20 MG, QD
     Dates: start: 20050101, end: 20090101
  15. MIGRAZONE [Concomitant]
     Indication: MIGRAINE
     Dosage: UNK
     Dates: start: 20050101
  16. MOBIC [Concomitant]
     Indication: PAIN
     Dosage: UNK
     Dates: start: 20050101
  17. METFORMIN HCL [Concomitant]
     Indication: DIABETES MELLITUS
     Dosage: UNK
     Dates: start: 20050101, end: 20100101
  18. ALLEGRA [Concomitant]
     Dosage: UNK
     Dates: start: 20080101
  19. LIDODERM [Concomitant]
     Indication: ARTHRALGIA
     Dosage: UNK
     Dates: start: 20050101, end: 20100101
  20. NEO/POLY DROPS 1% [Concomitant]
     Dosage: UNK UNK, HS
     Dates: start: 20050101
  21. IBUPROFEN [Concomitant]
     Dosage: UNK
     Dates: start: 20050101
  22. BUTALBITAL ACETAMINOPHEN AND CAFFEINE [Concomitant]
     Dosage: UNK
     Dates: start: 20090101, end: 20100101
  23. BUTALBITAL ACETAMINOPHEN AND CAFFEINE [Concomitant]
     Indication: MIGRAINE
     Dosage: UNK
     Dates: start: 20050101, end: 20070101
  24. CETIRIZINE HCL [Concomitant]
     Indication: SEASONAL ALLERGY
     Dosage: UNK
     Dates: start: 20050101, end: 20100101
  25. KLONOPIN [Concomitant]
     Indication: INSOMNIA
     Dosage: UNK UNK, QD
     Dates: start: 20050114
  26. LISINOPRIL [Concomitant]
     Indication: HYPERTENSION
     Dosage: 5 MG, QD
     Dates: start: 20050115, end: 20051201
  27. FUROSEMIDE [Concomitant]
     Indication: POLYURIA
     Dosage: UNK
     Dates: start: 20050101, end: 20100101
  28. PERCOCET [Concomitant]
     Indication: PAIN IN EXTREMITY
     Dosage: UNK
     Dates: start: 20010101
  29. KLONOPIN [Concomitant]
     Indication: MUSCLE SPASMS

REACTIONS (5)
  - DEEP VEIN THROMBOSIS [None]
  - FEAR [None]
  - OEDEMA PERIPHERAL [None]
  - MUSCLE SPASMS [None]
  - PAIN IN EXTREMITY [None]
